FAERS Safety Report 8962381 (Version 1)
Quarter: 2012Q4

REPORT INFORMATION
  Report Type: 
  Country: US (occurrence: None)
  Receive Date: 20121211
  Receipt Date: 20121211
  Transmission Date: 20130627
  Serious: No
  Sender: FDA-Public Use
  Company Number: None

PATIENT
  Sex: Male
  Weight: 103.64 kg

DRUGS (3)
  1. BEVACIZUMAB [Suspect]
  2. BENICAR [Concomitant]
  3. TOPROL [Concomitant]

REACTIONS (1)
  - Blood pressure increased [None]
